FAERS Safety Report 9468648 (Version 1)
Quarter: 2013Q3

REPORT INFORMATION
  Report Type: Spontaneous
  Country: US (occurrence: US)
  Receive Date: 20130821
  Receipt Date: 20130821
  Transmission Date: 20140515
  Serious: Yes (Other)
  Sender: FDA-Public Use
  Company Number: US-TEVA-426753USA

PATIENT
  Age: 52 Year
  Sex: Female

DRUGS (1)
  1. COPAXONE [Suspect]
     Indication: MULTIPLE SCLEROSIS
     Dates: start: 20110806, end: 20130101

REACTIONS (4)
  - Multiple sclerosis relapse [Recovering/Resolving]
  - Band sensation [Recovering/Resolving]
  - Abasia [Recovering/Resolving]
  - Paralysis [Recovering/Resolving]
